FAERS Safety Report 16754588 (Version 1)
Quarter: 2019Q3

REPORT INFORMATION
  Report Type: Spontaneous
  Country: DE (occurrence: DE)
  Receive Date: 20190829
  Receipt Date: 20190829
  Transmission Date: 20191005
  Serious: Yes (Hospitalization, Other)
  Sender: FDA-Public Use
  Company Number: DE-AMGEN-DEUSP2019138593

PATIENT
  Age: 47 Year
  Sex: Female

DRUGS (1)
  1. AIMOVIG [Suspect]
     Active Substance: ERENUMAB-AOOE
     Indication: MIGRAINE
     Dosage: 1 OT, QMO
     Route: 058
     Dates: start: 20190719

REACTIONS (7)
  - Nasopharyngitis [Unknown]
  - Blood glucose increased [Unknown]
  - Nausea [Unknown]
  - Pyrexia [Unknown]
  - Vomiting [Unknown]
  - Migraine [Unknown]
  - Respiratory distress [Unknown]

NARRATIVE: CASE EVENT DATE: 20190720
